FAERS Safety Report 8394115-3 (Version None)
Quarter: 2012Q2

REPORT INFORMATION
  Report Type: 
  Country: None (occurrence: None)
  Receive Date: 20120530
  Receipt Date: 20120518
  Transmission Date: 20120825
  Serious: Yes (Death)
  Sender: FDA-Public Use
  Company Number: JP-NAPPMUNDI-MAG-2012-0002141

PATIENT
  Sex: Female

DRUGS (7)
  1. SEFTAC [Concomitant]
     Indication: GASTRITIS
     Dosage: 3 DF, DAILY
     Route: 048
     Dates: start: 20110610, end: 20120131
  2. RINDERON                           /00008501/ [Concomitant]
     Indication: PRODUCT USED FOR UNKNOWN INDICATION
     Dosage: 2 G, UNK
     Route: 065
  3. BUPRENORPHINE [Suspect]
     Indication: PAIN
     Dosage: 5 MCG, Q1H
     Route: 062
     Dates: start: 20111017, end: 20120201
  4. LIMARMONE [Concomitant]
     Indication: SCIATICA
     Dosage: 3 DF, DAILY
     Route: 048
     Dates: start: 20110610, end: 20120131
  5. VITAMIN B12 [Concomitant]
     Indication: SCIATICA
     Dosage: 3 DF, DAILY
     Route: 048
     Dates: start: 20110610
  6. XYLOCAINE [Concomitant]
     Indication: PRODUCT USED FOR UNKNOWN INDICATION
     Dosage: 5 ML, ONCE IN 2 WEEKS
     Route: 065
  7. LORCAM [Concomitant]
     Indication: PAIN
     Dosage: 3 DF, DAILY
     Route: 048
     Dates: start: 20110610, end: 20111130

REACTIONS (1)
  - SUDDEN DEATH [None]
